FAERS Safety Report 10982211 (Version 1)
Quarter: 2015Q2

REPORT INFORMATION
  Report Type: Spontaneous
  Country: FR (occurrence: FR)
  Receive Date: 20150403
  Receipt Date: 20150403
  Transmission Date: 20150821
  Serious: Yes (Life-Threatening)
  Sender: FDA-Public Use
  Company Number: FR-ROCHE-1558430

PATIENT
  Age: 72 Year
  Sex: Female

DRUGS (17)
  1. PANTOPRAZOLE [Concomitant]
     Active Substance: PANTOPRAZOLE SODIUM
  2. LOVENOX [Concomitant]
     Active Substance: ENOXAPARIN SODIUM
  3. HYPERIUM [Concomitant]
     Active Substance: RILMENIDINE PHOSPHATE
  4. KARDEGIC [Concomitant]
     Active Substance: ASPIRIN LYSINE
  5. OLMETEC [Concomitant]
     Active Substance: OLMESARTAN MEDOXOMIL
  6. DOLIPRANE [Concomitant]
     Active Substance: ACETAMINOPHEN
  7. EUPRESSYL [Concomitant]
     Active Substance: URAPIDIL
  8. OXYCONTIN [Concomitant]
     Active Substance: OXYCODONE HYDROCHLORIDE
  9. TEMESTA (FRANCE) [Concomitant]
  10. VENLAFAXINE [Concomitant]
     Active Substance: VENLAFAXINE HYDROCHLORIDE
  11. NOVATREX NOS [Suspect]
     Active Substance: AZITHROMYCIN OR METHOTREXATE SODIUM
     Indication: PRODUCT USED FOR UNKNOWN INDICATION
     Route: 048
     Dates: end: 201502
  12. ROACTEMRA [Suspect]
     Active Substance: TOCILIZUMAB
     Indication: RHEUMATOID ARTHRITIS
     Route: 065
     Dates: end: 201502
  13. DUPHALAC [Concomitant]
     Active Substance: LACTULOSE
  14. LYRICA [Concomitant]
     Active Substance: PREGABALIN
  15. NEBIVOLOL [Concomitant]
     Active Substance: NEBIVOLOL
  16. LASILIX [Concomitant]
     Active Substance: FUROSEMIDE
     Route: 065
  17. OXYNORMORO [Concomitant]
     Active Substance: OXYCODONE

REACTIONS (1)
  - Pulmonary fibrosis [Recovered/Resolved with Sequelae]

NARRATIVE: CASE EVENT DATE: 201501
